FAERS Safety Report 9122294 (Version 1)
Quarter: 2013Q1

REPORT INFORMATION
  Report Type: Spontaneous
  Country: US (occurrence: US)
  Receive Date: 20130114
  Receipt Date: 20130114
  Transmission Date: 20140127
  Serious: No
  Sender: FDA-Public Use
  Company Number: US-BIOGENIDEC-2013BI000026

PATIENT
  Age: 36 Year
  Sex: Female

DRUGS (3)
  1. AVONEX [Suspect]
     Indication: MULTIPLE SCLEROSIS
     Route: 030
     Dates: start: 20000702, end: 20030702
  2. AVONEX [Suspect]
     Indication: MULTIPLE SCLEROSIS
     Route: 030
     Dates: start: 20100618
  3. FLU SHOT [Concomitant]
     Indication: ANTIVIRAL PROPHYLAXIS
     Dates: start: 201212

REACTIONS (4)
  - Influenza [Not Recovered/Not Resolved]
  - Cyanosis [Unknown]
  - Chills [Not Recovered/Not Resolved]
  - Pain [Unknown]
